FAERS Safety Report 4497557-1 (Version None)
Quarter: 2004Q4

REPORT INFORMATION
  Report Type: 
  Country: None (occurrence: None)
  Receive Date: 20041104
  Receipt Date: 20041020
  Transmission Date: 20050328
  Serious: Yes (Hospitalization)
  Sender: FDA-Public Use
  Company Number: 2004-BP-10409BP

PATIENT
  Sex: Male

DRUGS (2)
  1. MEXITIL [Suspect]
     Dosage: PO
     Route: 048
     Dates: start: 20030601, end: 20040813
  2. BETAPACE [Concomitant]

REACTIONS (1)
  - LOSS OF CONSCIOUSNESS [None]
